FAERS Safety Report 12170201 (Version 1)
Quarter: 2016Q1

REPORT INFORMATION
  Report Type: Spontaneous
  Country: US (occurrence: US)
  Receive Date: 20160311
  Receipt Date: 20160311
  Transmission Date: 20160526
  Serious: Yes (Death, Hospitalization)
  Sender: FDA-Public Use
  Company Number: US-HOSPIRA-3202761

PATIENT
  Age: 4 Year
  Sex: Female

DRUGS (1)
  1. METHOTREXATE [Suspect]
     Active Substance: METHOTREXATE
     Indication: ACUTE LYMPHOCYTIC LEUKAEMIA
     Dosage: FOR THREE DOSES
     Route: 042
     Dates: start: 198703, end: 198704

REACTIONS (2)
  - Leukoencephalopathy [Fatal]
  - Neurological decompensation [Fatal]
